FAERS Safety Report 22035875 (Version 1)
Quarter: 2023Q1

REPORT INFORMATION
  Report Type: Spontaneous
  Country: US (occurrence: None)
  Receive Date: 20230223
  Receipt Date: 20230223
  Transmission Date: 20230418
  Serious: Yes (Hospitalization)
  Sender: FDA-Public Use
  Company Number: None

PATIENT
  Age: 43 Year
  Sex: Male

DRUGS (1)
  1. ADAKVEO [Suspect]
     Active Substance: CRIZANLIZUMAB-TMCA
     Indication: Sickle cell disease
     Dosage: 298 MG EVERY 4 WEEKS IV
     Route: 042
     Dates: start: 202106

REACTIONS (3)
  - Sickle cell anaemia with crisis [None]
  - Therapy interrupted [None]
  - Memory impairment [None]

NARRATIVE: CASE EVENT DATE: 20230222
